FAERS Safety Report 10231023 (Version 1)
Quarter: 2014Q2

REPORT INFORMATION
  Report Type: Spontaneous
  Country: US (occurrence: None)
  Receive Date: 20140506
  Receipt Date: 20140506
  Transmission Date: 20141212
  Serious: Yes (Other)
  Sender: FDA-Public Use
  Company Number: 1343070

PATIENT
  Sex: Male

DRUGS (4)
  1. AVASTIN (BEVACIZUMAB) [Suspect]
     Indication: ANAPLASTIC OLIGODENDROGLIOMA
     Dosage: (2 IN 1 M), UNKNOWN
     Dates: start: 201201, end: 201204
  2. LISINOPRIL (LISINOPRIL) [Suspect]
     Indication: BLOOD PRESSURE INCREASED
  3. TEMODAR (TEMOZOLOMIDE) [Concomitant]
  4. RADIATION THERAPY (RADIATION THERAPY) [Concomitant]

REACTIONS (5)
  - Proteinuria [None]
  - Blood pressure increased [None]
  - Rash generalised [None]
  - Respiratory tract infection [None]
  - Drug hypersensitivity [None]
